FAERS Safety Report 6971481-4 (Version None)
Quarter: 2010Q3

REPORT INFORMATION
  Report Type: 
  Country: None (occurrence: None)
  Receive Date: 20100903
  Receipt Date: 20100901
  Transmission Date: 20110219
  Serious: Yes (Other)
  Sender: FDA-Public Use
  Company Number: 1000015149

PATIENT
  Age: 81 Year
  Sex: Male

DRUGS (10)
  1. NAMENDA [Suspect]
     Indication: DEMENTIA ALZHEIMER'S TYPE
     Dosage: 10 MG (10 MG, 1 IN 1 D), ORAL
     Route: 048
     Dates: start: 20090601, end: 20090601
  2. NAMENDA [Suspect]
     Indication: DEMENTIA ALZHEIMER'S TYPE
     Dosage: 20 (10 ,2 IN 1 D), ORAL
     Route: 048
     Dates: start: 20090601, end: 20100701
  3. ARICEPT [Concomitant]
  4. PREDNISONE [Concomitant]
  5. KLOR-CON [Concomitant]
  6. QVAR 40 [Concomitant]
  7. NORVASC [Concomitant]
  8. SINGULAIR [Concomitant]
  9. HYTRIN [Concomitant]
  10. VITAMIN D [Concomitant]

REACTIONS (2)
  - BRAIN OEDEMA [None]
  - SOMNOLENCE [None]
